FAERS Safety Report 9226161 (Version 5)
Quarter: 2015Q3

REPORT INFORMATION
  Report Type: Spontaneous
  Country: US (occurrence: US)
  Receive Date: 20130411
  Receipt Date: 20150831
  Transmission Date: 20151125
  Serious: Yes (Death, Hospitalization, Disabling, Other)
  Sender: FDA-Public Use
  Company Number: US-009507513-1304USA004656

PATIENT
  Sex: Male
  Weight: 176.87 kg

DRUGS (1)
  1. JANUVIA [Suspect]
     Active Substance: SITAGLIPTIN PHOSPHATE
     Indication: TYPE 2 DIABETES MELLITUS
     Dosage: 100 MG, QD
     Route: 048
     Dates: start: 20080827, end: 20120424

REACTIONS (65)
  - Adenocarcinoma pancreas [Fatal]
  - Metastatic neoplasm [Unknown]
  - Hypertension [Unknown]
  - Gastrointestinal oedema [Unknown]
  - Lipomatosis [Unknown]
  - Radiotherapy [Unknown]
  - Cardiomegaly [Unknown]
  - Atelectasis [Unknown]
  - Constipation [Not Recovered/Not Resolved]
  - Surgery [Unknown]
  - Metastases to abdominal wall [Unknown]
  - Metastases to liver [Unknown]
  - Pleural effusion [Unknown]
  - Benign neoplasm of adrenal gland [Unknown]
  - Pneumonia [Unknown]
  - Bone lesion [Unknown]
  - Cholecystectomy [Unknown]
  - Metastasis [Unknown]
  - Radiotherapy [Unknown]
  - Atrial fibrillation [Unknown]
  - Blood alkaline phosphatase increased [Unknown]
  - Pneumonia [Unknown]
  - Deep vein thrombosis [Unknown]
  - Pancreatic duct obstruction [Unknown]
  - Scar [Unknown]
  - Arteriosclerosis coronary artery [Unknown]
  - Scoliosis [Unknown]
  - Hypertensive heart disease [Unknown]
  - Open reduction of fracture [Unknown]
  - Large intestine polyp [Unknown]
  - Cataract operation [Unknown]
  - Musculoskeletal pain [Unknown]
  - Psoriatic arthropathy [Unknown]
  - Hypercholesterolaemia [Unknown]
  - Pleural effusion [Unknown]
  - Hepatic steatosis [Unknown]
  - Pulmonary mass [Unknown]
  - Lymphadenopathy [Unknown]
  - Asthma [Unknown]
  - Gout [Unknown]
  - Nephrolithiasis [Unknown]
  - Cataract [Unknown]
  - Gallbladder cholesterolosis [Unknown]
  - Pleural calcification [Unknown]
  - Pleural effusion [Unknown]
  - Pulmonary mass [Unknown]
  - Cyst [Unknown]
  - Metastases to lymph nodes [Unknown]
  - Ascites [Unknown]
  - Psoriasis [Unknown]
  - Upper gastrointestinal haemorrhage [Recovered/Resolved]
  - Cholecystitis acute [Unknown]
  - Cholecystitis chronic [Not Recovered/Not Resolved]
  - Bronchial wall thickening [Unknown]
  - Haemangioma of spleen [Unknown]
  - Splenic vein thrombosis [Unknown]
  - Spinal osteoarthritis [Unknown]
  - Bronchitis [Unknown]
  - Ulcer [Unknown]
  - Metastases to spleen [Unknown]
  - Pancreatitis [Unknown]
  - Splenic vein occlusion [Unknown]
  - Small intestinal obstruction [Unknown]
  - Oedema peripheral [Not Recovered/Not Resolved]
  - Cholelithiasis [Unknown]

NARRATIVE: CASE EVENT DATE: 201110
